FAERS Safety Report 15328169 (Version 1)
Quarter: 2018Q3

REPORT INFORMATION
  Report Type: Spontaneous
  Country: CN (occurrence: CN)
  Receive Date: 20180828
  Receipt Date: 20180828
  Transmission Date: 20181010
  Serious: Yes (Hospitalization, Other)
  Sender: FDA-Public Use
  Company Number: CN-STRIDES ARCOLAB LIMITED-2018SP007137

PATIENT

DRUGS (5)
  1. AMBROXOL HYDROCHLORIDE [Concomitant]
     Active Substance: AMBROXOL HYDROCHLORIDE
     Indication: INFECTION PROPHYLAXIS
     Dosage: 90 MG, QD
     Route: 042
     Dates: start: 201307
  2. VANCOMYCIN [Suspect]
     Active Substance: VANCOMYCIN
     Indication: INFECTION PROPHYLAXIS
     Dosage: 0.5 G, EVERY 8 HOURS
     Route: 042
     Dates: start: 201307, end: 201307
  3. FLUCONAZOLE. [Suspect]
     Active Substance: FLUCONAZOLE
     Dosage: 0.2 G, QD
     Route: 042
     Dates: start: 201307, end: 201307
  4. FLUCONAZOLE. [Suspect]
     Active Substance: FLUCONAZOLE
     Indication: INFECTION PROPHYLAXIS
     Dosage: 0.4 G, QD
     Route: 042
     Dates: start: 201307, end: 201307
  5. CEFTRIAXONE. [Suspect]
     Active Substance: CEFTRIAXONE
     Indication: CENTRAL NERVOUS SYSTEM INFECTION
     Dosage: 2 G, BID
     Route: 042
     Dates: start: 20130503, end: 20130621

REACTIONS (5)
  - Hepatic function abnormal [Recovered/Resolved]
  - Liver tenderness [Recovered/Resolved]
  - Hepatomegaly [Recovered/Resolved]
  - Cholelithiasis [Recovered/Resolved]
  - Abdominal discomfort [Recovered/Resolved]

NARRATIVE: CASE EVENT DATE: 2013
